FAERS Safety Report 16204180 (Version 2)
Quarter: 2019Q2

REPORT INFORMATION
  Report Type: Spontaneous
  Country: ES (occurrence: ES)
  Receive Date: 20190416
  Receipt Date: 20190424
  Transmission Date: 20190711
  Serious: Yes (Other)
  Sender: FDA-Public Use
  Company Number: ES-ASTRAZENECA-2019SE57687

PATIENT
  Age: 75 Year

DRUGS (4)
  1. TIMOLOL. [Concomitant]
     Active Substance: TIMOLOL
  2. ENALAPRIL [Concomitant]
     Active Substance: ENALAPRIL
  3. OMEPRAZOLE. [Suspect]
     Active Substance: OMEPRAZOLE
     Indication: PRODUCT USED FOR UNKNOWN INDICATION
     Route: 048
  4. PARACETAMOL [Concomitant]
     Active Substance: ACETAMINOPHEN

REACTIONS (1)
  - Thrombophlebitis superficial [Unknown]
